FAERS Safety Report 14018514 (Version 1)
Quarter: 2017Q3

REPORT INFORMATION
  Report Type: Spontaneous
  Country: US (occurrence: None)
  Receive Date: 20170928
  Receipt Date: 20170928
  Transmission Date: 20171128
  Serious: Yes (Hospitalization)
  Sender: FDA-Public Use
  Company Number: None

PATIENT
  Age: 8 Year
  Sex: Female
  Weight: 19.6 kg

DRUGS (6)
  1. CYTARABINE. [Suspect]
     Active Substance: CYTARABINE
     Dates: end: 20151011
  2. HYDROCORTISONE. [Suspect]
     Active Substance: HYDROCORTISONE
     Dates: end: 20151015
  3. METHOTREXATE. [Suspect]
     Active Substance: METHOTREXATE
     Dates: end: 20151015
  4. CYCLOPHOSPHAMIDE. [Suspect]
     Active Substance: CYCLOPHOSPHAMIDE
     Dates: end: 20151001
  5. ONCASPAR [Suspect]
     Active Substance: PEGASPARGASE
     Dates: end: 20151015
  6. MERCAPTOPURINE. [Suspect]
     Active Substance: MERCAPTOPURINE
     Dates: end: 20151014

REACTIONS (21)
  - Pseudomonal bacteraemia [None]
  - Respiratory disorder [None]
  - Pleural effusion [None]
  - Kidney infection [None]
  - Lung infection [None]
  - Hepatic infection fungal [None]
  - Splenic infection fungal [None]
  - Candida test positive [None]
  - Pyrexia [None]
  - Intra-abdominal fluid collection [None]
  - Alanine aminotransferase increased [None]
  - Blood bilirubin increased [None]
  - Intestinal perforation [None]
  - Fungal infection [None]
  - Aspartate aminotransferase increased [None]
  - Activated partial thromboplastin time prolonged [None]
  - Fibrin D dimer increased [None]
  - Abdominal wound dehiscence [None]
  - Hypotension [None]
  - Gamma-glutamyltransferase increased [None]
  - Platelet count decreased [None]

NARRATIVE: CASE EVENT DATE: 20151022
